FAERS Safety Report 5367142-8 (Version None)
Quarter: 2007Q2

REPORT INFORMATION
  Report Type: 
  Country: None (occurrence: None)
  Receive Date: 20070622
  Receipt Date: 20061213
  Transmission Date: 20071010
  Serious: Yes (Hospitalization)
  Sender: FDA-Public Use
  Company Number: US-BRISTOL-MYERS SQUIBB COMPANY-13616131

PATIENT
  Age: 79 Year
  Sex: Male

DRUGS (2)
  1. SINEMET [Suspect]
     Indication: APRAXIA
     Route: 048
     Dates: start: 20040219, end: 20040223
  2. CARBIDOPA AND LEVODOPA [Concomitant]

REACTIONS (2)
  - NAUSEA [None]
  - VOMITING [None]
